FAERS Safety Report 20500223 (Version 1)
Quarter: 2022Q1

REPORT INFORMATION
  Report Type: Spontaneous
  Country: US (occurrence: None)
  Receive Date: 20220222
  Receipt Date: 20220222
  Transmission Date: 20220423
  Serious: Yes (Hospitalization)
  Sender: FDA-Public Use
  Company Number: US-ROCHE-3029613

PATIENT
  Age: 75 Year
  Sex: Male
  Weight: 73.094 kg

DRUGS (1)
  1. ESBRIET [Suspect]
     Active Substance: PIRFENIDONE
     Indication: Idiopathic pulmonary fibrosis
     Dosage: YES
     Route: 048
     Dates: start: 20220112, end: 20220119

REACTIONS (1)
  - Fibrosis [Not Recovered/Not Resolved]

NARRATIVE: CASE EVENT DATE: 20220119
